FAERS Safety Report 26197047 (Version 1)
Quarter: 2025Q4

REPORT INFORMATION
  Report Type: Spontaneous
  Country: US (occurrence: US)
  Receive Date: 20251224
  Receipt Date: 20251224
  Transmission Date: 20260118
  Serious: No
  Sender: STRIDES
  Company Number: US-STRIDES ARCOLAB LIMITED-2025SP015414

PATIENT
  Age: 74 Year
  Sex: Female

DRUGS (8)
  1. PREDNISONE [Suspect]
     Active Substance: PREDNISONE
     Indication: Pemphigoid
     Dosage: INITIAL DOSE
     Route: 065
  2. PREDNISONE [Suspect]
     Active Substance: PREDNISONE
     Dosage: 5 MILLIGRAM, QD (TAPERED) ON A 3-WEEK PREDNISONE
     Route: 065
  3. PREDNISONE [Suspect]
     Active Substance: PREDNISONE
     Dosage: 10 MILLIGRAM, QD (FOR TWO ADDITIONAL WEEKS)
     Route: 065
  4. PREDNISONE [Suspect]
     Active Substance: PREDNISONE
     Dosage: 5 MILLIGRAM, QD
     Route: 065
  5. METHOTREXATE [Suspect]
     Active Substance: METHOTREXATE
     Indication: Pemphigoid
     Dosage: 7.5 MILLIGRAM, ONCE A WEEK
     Route: 065
  6. METHOTREXATE [Suspect]
     Active Substance: METHOTREXATE
     Indication: Pemphigoid
     Dosage: UNK, INCREASED DOSE
     Route: 065
  7. CLOBETASOL [Concomitant]
     Active Substance: CLOBETASOL
     Indication: Pemphigoid
     Dosage: UNK
     Route: 061
  8. CLOBETASOL [Concomitant]
     Active Substance: CLOBETASOL
     Indication: Pemphigoid
     Dosage: THROUGHOUT THE TREATMENT CLOBETASOL WAS USED MULTIPLE TIMES A DAY
     Route: 061

REACTIONS (3)
  - Rebound effect [Unknown]
  - Drug effective for unapproved indication [Unknown]
  - Off label use [Unknown]
